FAERS Safety Report 9838717 (Version 1)
Quarter: 2014Q1

REPORT INFORMATION
  Report Type: Spontaneous
  Country: US (occurrence: US)
  Receive Date: 20140123
  Receipt Date: 20140123
  Transmission Date: 20141002
  Serious: No
  Sender: FDA-Public Use
  Company Number: US-BAYER-2014-012512

PATIENT
  Age: 78 Year
  Sex: Female
  Weight: 66 kg

DRUGS (1)
  1. ALEVE CAPLET [Suspect]
     Indication: ARTHRITIS
     Dosage: 2 DF, QD WITH FOOD
     Route: 048
     Dates: start: 2004

REACTIONS (2)
  - Drug ineffective [None]
  - Incorrect drug administration duration [None]
